FAERS Safety Report 20919313 (Version 1)
Quarter: 2022Q2

REPORT INFORMATION
  Report Type: Spontaneous
  Country: US (occurrence: US)
  Receive Date: 20220606
  Receipt Date: 20220606
  Transmission Date: 20220721
  Serious: No
  Sender: FDA-Public Use
  Company Number: US-LUPIN PHARMACEUTICALS INC.-2022-08300

PATIENT

DRUGS (10)
  1. RIFABUTIN [Interacting]
     Active Substance: RIFABUTIN
     Indication: Staphylococcal infection
     Dosage: 300 MG, QD
     Route: 065
  2. RIFABUTIN [Interacting]
     Active Substance: RIFABUTIN
     Indication: Device related infection
  3. OXYCODONE [Interacting]
     Active Substance: OXYCODONE
     Indication: Product used for unknown indication
     Dosage: UNK
     Route: 065
  4. ROSUVASTATIN [Interacting]
     Active Substance: ROSUVASTATIN
     Indication: Product used for unknown indication
     Dosage: UNK
     Route: 065
  5. AMLODIPINE [Interacting]
     Active Substance: AMLODIPINE BESYLATE
     Indication: Product used for unknown indication
     Dosage: UNK
     Route: 065
  6. DOXYCYCLINE [Suspect]
     Active Substance: DOXYCYCLINE
     Indication: Staphylococcal infection
     Dosage: UNK
     Route: 048
  7. DOXYCYCLINE [Suspect]
     Active Substance: DOXYCYCLINE
     Indication: Device related infection
  8. METOPROLOL [Interacting]
     Active Substance: METOPROLOL
     Indication: Product used for unknown indication
     Dosage: UNK
     Route: 065
  9. CEFAZOLIN [Concomitant]
     Active Substance: CEFAZOLIN
     Indication: Staphylococcal infection
     Dosage: UNK
     Route: 042
  10. CEFAZOLIN [Concomitant]
     Active Substance: CEFAZOLIN
     Indication: Device related infection

REACTIONS (2)
  - Drug interaction [Unknown]
  - Off label use [Unknown]
